FAERS Safety Report 18055164 (Version 1)
Quarter: 2020Q3

REPORT INFORMATION
  Report Type: Spontaneous
  Country: US (occurrence: US)
  Receive Date: 20200721
  Receipt Date: 20200721
  Transmission Date: 20201103
  Serious: Yes (Hospitalization)
  Sender: FDA-Public Use
  Company Number: None

PATIENT
  Age: 79 Year
  Sex: Male
  Weight: 83.1 kg

DRUGS (1)
  1. APIXABAN (APIXABAN 5MG TAB) [Suspect]
     Active Substance: APIXABAN
     Indication: ATRIAL FIBRILLATION
     Route: 048
     Dates: start: 20160212, end: 20180827

REACTIONS (7)
  - Creatinine renal clearance decreased [None]
  - Haemorrhage [None]
  - Anaemia [None]
  - Therapy interrupted [None]
  - Skin necrosis [None]
  - Haematoma [None]
  - Product prescribing issue [None]

NARRATIVE: CASE EVENT DATE: 20180827
